FAERS Safety Report 6424975-4 (Version None)
Quarter: 2009Q4

REPORT INFORMATION
  Report Type: 
  Country: None (occurrence: None)
  Receive Date: 20091102
  Receipt Date: 20091102
  Transmission Date: 20100525
  Serious: No
  Sender: FDA-Public Use
  Company Number: None

PATIENT
  Age: 68 Year
  Sex: Male

DRUGS (1)
  1. IOPROMIDE [Suspect]
     Indication: COMPUTERISED TOMOGRAM
     Dates: start: 20090409, end: 20090409

REACTIONS (4)
  - INFUSION RELATED REACTION [None]
  - PRURITUS [None]
  - RASH [None]
  - URTICARIA [None]
